FAERS Safety Report 11831314 (Version 1)
Quarter: 2015Q4

REPORT INFORMATION
  Report Type: Spontaneous
  Country: GB (occurrence: GB)
  Receive Date: 20151214
  Receipt Date: 20151214
  Transmission Date: 20160305
  Serious: Yes (Other)
  Sender: FDA-Public Use
  Company Number: GB-WATSON-2015-27301

PATIENT
  Sex: Female

DRUGS (3)
  1. FENTANYL (UNKNOWN) [Suspect]
     Active Substance: FENTANYL
     Dosage: 25 ?G, UNK; SOLUTION
     Route: 058
  2. SUBLIMAZE [Suspect]
     Active Substance: FENTANYL CITRATE
     Indication: BREAKTHROUGH PAIN
     Dosage: 25 ?G, UNK
     Route: 058
  3. FENTANYL (UNKNOWN) [Suspect]
     Active Substance: FENTANYL
     Indication: BREAKTHROUGH PAIN
     Dosage: 300 ?G, UNK; INJECTION
     Route: 058

REACTIONS (4)
  - Cardiac arrest [Unknown]
  - Incorrect route of drug administration [Unknown]
  - Therapeutic response decreased [Unknown]
  - Off label use [Unknown]
